FAERS Safety Report 11700248 (Version 2)
Quarter: 2016Q1

REPORT INFORMATION
  Report Type: Spontaneous
  Country: US (occurrence: US)
  Receive Date: 20151105
  Receipt Date: 20160119
  Transmission Date: 20160525
  Serious: No
  Sender: FDA-Public Use
  Company Number: US-PFIZER INC-2015361358

PATIENT
  Age: 79 Year
  Sex: Female
  Weight: 56 kg

DRUGS (1)
  1. IBRANCE [Suspect]
     Active Substance: PALBOCICLIB
     Dosage: UNK, CYCLIC (21 DAYS ON AND 7 DAYS OFF)
     Dates: start: 201510

REACTIONS (2)
  - Visual acuity reduced [Unknown]
  - Alopecia [Unknown]

NARRATIVE: CASE EVENT DATE: 2015
